FAERS Safety Report 5598385-6 (Version None)
Quarter: 2008Q1

REPORT INFORMATION
  Report Type: 
  Country: None (occurrence: None)
  Receive Date: 20080116
  Receipt Date: 20080104
  Transmission Date: 20080703
  Serious: Yes (Disabling)
  Sender: FDA-Public Use
  Company Number: BEN-2008-001

PATIENT
  Age: 37 Year
  Sex: Female

DRUGS (2)
  1. BENTYL [Suspect]
     Indication: ABDOMINAL PAIN
     Dosage: 1 DOSE, IV
     Route: 042
     Dates: start: 20070814, end: 20070814
  2. BENTYL (DICYCLOMINE HYDROCHLORIDE) TABLETS [Concomitant]

REACTIONS (6)
  - ASTHENIA [None]
  - COMPLEX REGIONAL PAIN SYNDROME [None]
  - HYPOAESTHESIA [None]
  - PARAESTHESIA [None]
  - SENSORY LOSS [None]
  - SKIN DISCOLOURATION [None]
